FAERS Safety Report 9300327 (Version 2)
Quarter: 2013Q2

REPORT INFORMATION
  Report Type: Spontaneous
  Country: US (occurrence: US)
  Receive Date: 20130521
  Receipt Date: 20130604
  Transmission Date: 20140414
  Serious: Yes (Other)
  Sender: FDA-Public Use
  Company Number: US-TEVA-405914USA

PATIENT
  Sex: Female

DRUGS (6)
  1. FLUCONAZOLE [Suspect]
     Indication: FUNGAL INFECTION
     Dates: start: 201302
  2. FLUCONAZOLE [Suspect]
     Indication: PYREXIA
  3. FLUCONAZOLE [Suspect]
     Indication: VULVOVAGINAL PRURITUS
  4. NITROFURANTOIN [Suspect]
     Indication: BACTERIAL INFECTION
  5. AMOXICILLIN W/CLAVULANIC ACID TEVA [Suspect]
  6. CIPROFLOXACIN [Suspect]
     Indication: ENTEROBACTER TEST POSITIVE

REACTIONS (4)
  - Klebsiella infection [Unknown]
  - Enterobacter test positive [Unknown]
  - Vulvovaginal pruritus [Unknown]
  - Pyrexia [Unknown]
